FAERS Safety Report 15268073 (Version 3)
Quarter: 2018Q3

REPORT INFORMATION
  Report Type: Spontaneous
  Country: US (occurrence: US)
  Receive Date: 20180812
  Receipt Date: 20180913
  Transmission Date: 20181010
  Serious: No
  Sender: FDA-Public Use
  Company Number: US-ASTRAZENECA-2018SF01361

PATIENT
  Age: 73 Year
  Sex: Female
  Weight: 45.4 kg

DRUGS (2)
  1. TUDORZA PRESSAIR [Suspect]
     Active Substance: ACLIDINIUM BROMIDE
     Indication: CHRONIC OBSTRUCTIVE PULMONARY DISEASE
     Dosage: 400 UG, ONE PUFF, TWICE A DAY
     Route: 055
  2. ALBUTEROL. [Concomitant]
     Active Substance: ALBUTEROL
     Dosage: UNKNOWN
     Route: 065

REACTIONS (4)
  - Drug dose omission [Unknown]
  - Dyspnoea [Unknown]
  - Anxiety [Unknown]
  - Device malfunction [Unknown]

NARRATIVE: CASE EVENT DATE: 2018
